FAERS Safety Report 5188772-2 (Version None)
Quarter: 2006Q4

REPORT INFORMATION
  Report Type: 
  Country: None (occurrence: None)
  Receive Date: 20061221
  Receipt Date: 20061212
  Transmission Date: 20070319
  Serious: Yes (Other)
  Sender: FDA-Public Use
  Company Number: US-ABBOTT-06P-163-0353290-00

PATIENT
  Sex: Female
  Weight: 84.444 kg

DRUGS (5)
  1. HUMIRA [Suspect]
     Indication: RHEUMATOID ARTHRITIS
     Route: 058
     Dates: start: 20060401, end: 20061005
  2. PRENATAL VITAMINS [Concomitant]
     Indication: PRENATAL CARE
     Route: 048
     Dates: start: 20060721, end: 20061005
  3. CAFFEINE [Concomitant]
     Indication: BLOOD CAFFEINE
     Route: 048
     Dates: start: 20060623, end: 20061005
  4. PREDNISONE TAB [Concomitant]
     Indication: RHEUMATOID ARTHRITIS
     Route: 048
     Dates: start: 20060708, end: 20060711
  5. ACETAMINOPHEN [Concomitant]
     Indication: HEADACHE
     Route: 048
     Dates: start: 20060717, end: 20060717

REACTIONS (2)
  - ABORTION SPONTANEOUS [None]
  - DRUG EXPOSURE DURING PREGNANCY [None]
